FAERS Safety Report 9513811 (Version 4)
Quarter: 2014Q1

REPORT INFORMATION
  Report Type: Spontaneous
  Country: US (occurrence: US)
  Receive Date: 20130910
  Receipt Date: 20140321
  Transmission Date: 20141002
  Serious: Yes (Death, Hospitalization, Other)
  Sender: FDA-Public Use
  Company Number: US-PFIZER INC-2013133000

PATIENT
  Age: 71 Year
  Sex: Female

DRUGS (13)
  1. DILANTIN [Suspect]
     Indication: CONVULSION
     Dosage: 800 MG, 2X/DAY
     Route: 042
     Dates: start: 20030418, end: 20030422
  2. DILANTIN [Suspect]
     Indication: CONVULSION
     Dosage: 100 MG, 3X/DAY
     Route: 048
     Dates: start: 20030422, end: 20030520
  3. ENALAPRIL [Concomitant]
     Dosage: 20 MG, 2X/DAY
     Route: 048
  4. LOPRESSOR [Concomitant]
     Dosage: 50 MG, 1X/DAY
     Route: 048
  5. GLYBURIDE [Concomitant]
     Dosage: 5 MG, 1X/DAY
     Route: 048
  6. CARDIZEM [Concomitant]
     Dosage: 240 MG, 1X/DAY
     Route: 048
  7. PLAVIX [Concomitant]
     Dosage: 75 MG, 1X/DAY
     Route: 048
  8. VASOTEC [Concomitant]
     Dosage: UNK
  9. ZOCOR [Concomitant]
     Dosage: 20 MG, 1X/DAY AT BED TIME
  10. CLONIDINE [Concomitant]
     Dosage: 0.1 MG, 2X/DAY
  11. ASPIRIN [Concomitant]
     Dosage: 325 MG, UNK
     Route: 048
  12. FLAGYL [Concomitant]
     Dosage: 500 MG, 3X/DAY
  13. BUMEX [Concomitant]
     Dosage: 0.5 MG, 1X/DAY

REACTIONS (2)
  - Stevens-Johnson syndrome [Fatal]
  - Toxic epidermal necrolysis [Fatal]
